FAERS Safety Report 15654603 (Version 1)
Quarter: 2018Q4

REPORT INFORMATION
  Report Type: Spontaneous
  Country: US (occurrence: US)
  Receive Date: 20181126
  Receipt Date: 20181126
  Transmission Date: 20190205
  Serious: No
  Sender: FDA-Public Use
  Company Number: US-IPSEN BIOPHARMACEUTICALS, INC.-2018-17586

PATIENT
  Sex: Female

DRUGS (6)
  1. LEVOTHYROXINE. [Concomitant]
     Active Substance: LEVOTHYROXINE
  2. TRIAMTERENE AND HYDROCHLOROTHIAZIDE [Concomitant]
     Active Substance: HYDROCHLOROTHIAZIDE\TRIAMTERENE
     Dosage: 37.5 MG/25 MG
  3. SKELAXIN [Concomitant]
     Active Substance: METAXALONE
  4. CABERGOLINE. [Concomitant]
     Active Substance: CABERGOLINE
  5. HYROCORTISONE [Concomitant]
  6. SOMATULINE DEPOT [Suspect]
     Active Substance: LANREOTIDE ACETATE
     Indication: ACROMEGALY
     Dosage: 0.3 ML PFS.
     Route: 058
     Dates: start: 20160329

REACTIONS (1)
  - Musculoskeletal pain [Not Recovered/Not Resolved]
